FAERS Safety Report 14352748 (Version 3)
Quarter: 2018Q2

REPORT INFORMATION
  Report Type: Spontaneous
  Country: US (occurrence: US)
  Receive Date: 20180104
  Receipt Date: 20180611
  Transmission Date: 20180711
  Serious: No
  Sender: FDA-Public Use
  Company Number: US-PFIZER INC-2017549801

PATIENT
  Age: 45 Year
  Sex: Female

DRUGS (1)
  1. DOXYCYCLINE CALCIUM [Suspect]
     Active Substance: DOXYCYCLINE CALCIUM
     Indication: BRONCHITIS
     Dosage: UNK, 2X/DAY (100BID X10 D)
     Route: 048
     Dates: start: 20160426, end: 20160504

REACTIONS (3)
  - Drug intolerance [Unknown]
  - Disease recurrence [Recovered/Resolved]
  - Vomiting [Recovered/Resolved]

NARRATIVE: CASE EVENT DATE: 20160427
